FAERS Safety Report 14097469 (Version 1)
Quarter: 2017Q4

REPORT INFORMATION
  Report Type: Spontaneous
  Country: GB (occurrence: GB)
  Receive Date: 20171017
  Receipt Date: 20171017
  Transmission Date: 20180321
  Serious: Yes (Other)
  Sender: FDA-Public Use
  Company Number: GB-ASTRAZENECA-2017SF04598

PATIENT
  Age: 76 Year
  Sex: Female
  Weight: 54 kg

DRUGS (7)
  1. ADCAL [Concomitant]
     Active Substance: CALCIUM CARBONATE
     Dates: start: 20170306, end: 20170814
  2. AMLODIPINE [Concomitant]
     Active Substance: AMLODIPINE BESYLATE
     Dates: start: 20170306
  3. ROSUVASTATIN. [Suspect]
     Active Substance: ROSUVASTATIN
     Route: 048
     Dates: start: 20170831
  4. ATORVASTATIN [Concomitant]
     Active Substance: ATORVASTATIN
     Dates: start: 20170306, end: 20170831
  5. PARACETAMOL [Concomitant]
     Active Substance: ACETAMINOPHEN
     Dosage: 1-2 THREE TIMES A DAY, AS NECESSARY
     Dates: start: 20170306
  6. CALCI-D [Concomitant]
     Dates: start: 20170814
  7. LABETALOL HYDROCHLORIDE. [Concomitant]
     Active Substance: LABETALOL HYDROCHLORIDE
     Dates: start: 20170306

REACTIONS (2)
  - Alopecia [Not Recovered/Not Resolved]
  - Muscle spasms [Recovering/Resolving]

NARRATIVE: CASE EVENT DATE: 20171005
